FAERS Safety Report 5148310-7 (Version None)
Quarter: 2006Q4

REPORT INFORMATION
  Report Type: 
  Country: None (occurrence: None)
  Receive Date: 20061107
  Receipt Date: 20061027
  Transmission Date: 20070319
  Serious: Yes (Hospitalization, Disabling)
  Sender: FDA-Public Use
  Company Number: 2006AP000926

PATIENT
  Age: 78 Year
  Sex: Female

DRUGS (3)
  1. PAROXETINE HCL [Suspect]
     Indication: DEPRESSION
     Dosage: 10 MG; QD PO; SEE IMAGE
     Route: 048
     Dates: start: 19960101, end: 20060622
  2. PAROXETINE HCL [Suspect]
     Indication: DEPRESSION
     Dosage: 10 MG; QD PO; SEE IMAGE
     Route: 048
     Dates: start: 20060623, end: 20060712
  3. TRAMADOL HCL [Suspect]
     Indication: PAIN
     Dosage: 50 MG; PO; QID
     Route: 048
     Dates: start: 20060623, end: 20060710

REACTIONS (7)
  - DELIRIUM [None]
  - DEPRESSION [None]
  - DRUG INTERACTION [None]
  - HYPERTONIA [None]
  - PAIN [None]
  - SEROTONIN SYNDROME [None]
  - THERMAL BURN [None]
